FAERS Safety Report 4918567-3 (Version None)
Quarter: 2006Q1

REPORT INFORMATION
  Report Type: 
  Country: None (occurrence: None)
  Receive Date: 20060222
  Receipt Date: 20060215
  Transmission Date: 20060701
  Serious: Yes (Other)
  Sender: FDA-Public Use
  Company Number: ZA-BRISTOL-MYERS SQUIBB COMPANY-13284526

PATIENT
  Age: 35 Year
  Sex: Female

DRUGS (5)
  1. STAVUDINE [Suspect]
     Route: 048
     Dates: start: 20041006, end: 20060209
  2. STOCRIN [Suspect]
     Route: 048
     Dates: start: 20041006, end: 20060209
  3. LAMIVUDINE [Suspect]
     Route: 048
     Dates: start: 20041006, end: 20060209
  4. VITAMINS [Concomitant]
     Dates: start: 20040322
  5. BACTRIM [Concomitant]
     Dates: start: 20040322

REACTIONS (3)
  - ANION GAP INCREASED [None]
  - BLOOD LACTIC ACID INCREASED [None]
  - WEIGHT INCREASED [None]
